FAERS Safety Report 25590950 (Version 1)
Quarter: 2025Q3

REPORT INFORMATION
  Report Type: Other
  Country: QA (occurrence: QA)
  Receive Date: 20250722
  Receipt Date: 20250722
  Transmission Date: 20251020
  Serious: Yes (Hospitalization)
  Sender: Velzen Pharma
  Company Number: QA-Velzen pharma pvt ltd-2180947

PATIENT
  Age: 53 Year
  Sex: Male

DRUGS (5)
  1. NIFEDIPINE [Suspect]
     Active Substance: NIFEDIPINE
     Indication: Hypertension
  2. TIZANIDINE [Interacting]
     Active Substance: TIZANIDINE
  3. ONDANSETRON [Concomitant]
     Active Substance: ONDANSETRON
  4. KETOROLAC [Concomitant]
     Active Substance: KETOROLAC TROMETHAMINE
  5. ACETAMINOPHEN [Concomitant]
     Active Substance: ACETAMINOPHEN

REACTIONS (3)
  - Hypotension [Recovered/Resolved]
  - Product use in unapproved indication [Unknown]
  - Drug interaction [Unknown]
